FAERS Safety Report 8965469 (Version 1)
Quarter: 2012Q4

REPORT INFORMATION
  Report Type: 
  Country: FR (occurrence: FR)
  Receive Date: 20121213
  Receipt Date: 20121213
  Transmission Date: 20130627
  Serious: Yes (Hospitalization, Other)
  Sender: FDA-Public Use
  Company Number: FR-BRISTOL-MYERS SQUIBB COMPANY-17177254

PATIENT
  Age: 72 Year
  Sex: Male

DRUGS (6)
  1. COUMADIN TABS 5 MG [Suspect]
     Indication: ATRIAL FIBRILLATION
     Route: 048
     Dates: start: 201205
  2. DIAMICRON [Concomitant]
  3. TAHOR [Concomitant]
  4. LOXEN LP [Concomitant]
     Dosage: Formulation-Loxen LP 50 mg ,prolonged-release caps
  5. HYPERIUM [Concomitant]
     Dosage: tab
  6. MEDIATENSYL [Concomitant]

REACTIONS (2)
  - Cerebellar haematoma [Recovering/Resolving]
  - Hypertension [Unknown]
